FAERS Safety Report 6933900-9 (Version None)
Quarter: 2010Q3

REPORT INFORMATION
  Report Type: 
  Country: None (occurrence: None)
  Receive Date: 20100820
  Receipt Date: 20100818
  Transmission Date: 20110219
  Serious: Yes (Other)
  Sender: FDA-Public Use
  Company Number: FR-SANOFI-AVENTIS-2010SA048918

PATIENT
  Age: 73 Year
  Sex: Female
  Weight: 133.4 kg

DRUGS (8)
  1. FASTURTEC [Suspect]
     Indication: PROPHYLACTIC CHEMOTHERAPY
     Route: 041
     Dates: start: 20091126, end: 20091127
  2. ZAVEDOS [Suspect]
     Route: 041
     Dates: start: 20091126, end: 20091130
  3. BELUSTINE [Suspect]
     Route: 048
     Dates: start: 20091126, end: 20091126
  4. CYTARABINE [Suspect]
     Route: 041
     Dates: start: 20091126, end: 20091202
  5. HYDREA [Suspect]
     Route: 048
     Dates: start: 20091124, end: 20091124
  6. ZOPHREN [Suspect]
     Route: 042
     Dates: start: 20091126, end: 20091130
  7. EMEND [Concomitant]
     Dates: start: 20091126, end: 20091128
  8. LEVOTHYROXINE SODIUM [Concomitant]
     Indication: HYPOTHYROIDISM
     Route: 048

REACTIONS (5)
  - BILIRUBIN CONJUGATED INCREASED [None]
  - BLOOD BILIRUBIN INCREASED [None]
  - CYTOLYTIC HEPATITIS [None]
  - HEPATIC STEATOSIS [None]
  - JAUNDICE [None]
